FAERS Safety Report 5382279-5 (Version None)
Quarter: 2007Q3

REPORT INFORMATION
  Report Type: 
  Country: None (occurrence: None)
  Receive Date: 20070705
  Receipt Date: 20070619
  Transmission Date: 20080115
  Serious: Yes (Other)
  Sender: FDA-Public Use
  Company Number: 07-001265

PATIENT
  Age: 68 Year
  Sex: Male

DRUGS (4)
  1. TACLONEX [Suspect]
     Indication: PSORIASIS
     Dosage: SEE IMAGE
     Route: 061
     Dates: start: 20070601, end: 20070601
  2. TACLONEX [Suspect]
     Indication: PSORIASIS
     Dosage: SEE IMAGE
     Route: 061
     Dates: start: 20070601, end: 20070601
  3. DAIVONEX             (CALCIPOTRIOL) [Concomitant]
  4. CHOLESTEROL- AND TRIGLYCERIDE REDUCERS [Concomitant]

REACTIONS (2)
  - ERYTHRODERMIC PSORIASIS [None]
  - PUSTULAR PSORIASIS [None]
